FAERS Safety Report 8764370 (Version 1)
Quarter: 2012Q4

REPORT INFORMATION
  Report Type: 
  Country: US (occurrence: US)
  Receive Date: 20120831
  Receipt Date: 20120831
  Transmission Date: 20130627
  Serious: Yes (Hospitalization)
  Sender: FDA-Public Use
  Company Number: PHHY2012US073475

PATIENT
  Age: 55 Year
  Sex: Male
  Weight: 61.2 kg

DRUGS (14)
  1. NAFCILLIN [Suspect]
     Dosage: 2000 mg, Q4H
     Route: 042
  2. FENTANYL [Concomitant]
     Dosage: 100 ug/hr, UNK
  3. MIDAZOLAM [Concomitant]
     Indication: ANALGESIC THERAPY
     Route: 042
  4. MIDAZOLAM [Concomitant]
     Indication: SEDATION
  5. AMLODIPINE [Concomitant]
     Dosage: 5 mg, daily
  6. HYDRALAZINE [Concomitant]
     Indication: HYPERTENSION
     Dosage: 25 mg, Q6H
  7. FUROSEMIDE [Concomitant]
     Indication: PULMONARY OEDEMA
     Dosage: 40 mg, TID
     Route: 042
  8. FUROSEMIDE [Concomitant]
     Dosage: 80 mg, TID
     Route: 042
  9. FUROSEMIDE [Concomitant]
     Dosage: 80 mg, BID
     Route: 042
  10. HEPARIN [Concomitant]
     Indication: THROMBOSIS PROPHYLAXIS
     Dosage: 5000 U, UNK
     Route: 058
  11. FAMOTIDINE [Concomitant]
     Indication: STRESS ULCER
     Dosage: 20 mg, Q12H
     Route: 042
  12. CEFAZOLIN [Concomitant]
     Dosage: 1000 mg, UNK
     Route: 042
  13. VANCOMYCIN [Concomitant]
     Dosage: 1000 mg, Q12H
     Route: 042
  14. RIFAMPIN [Concomitant]
     Dosage: 300 mg, Q8H
     Route: 042

REACTIONS (12)
  - Pleural effusion [Unknown]
  - Respiratory distress [Unknown]
  - Aortic valve incompetence [Unknown]
  - Mitral valve incompetence [Unknown]
  - Tricuspid valve incompetence [Recovering/Resolving]
  - Cardiac valve vegetation [Unknown]
  - Tubulointerstitial nephritis [Recovering/Resolving]
  - Renal failure [Recovering/Resolving]
  - Urine output decreased [Recovering/Resolving]
  - Haematuria [Unknown]
  - Blood creatinine increased [Recovering/Resolving]
  - Leukocyturia [Unknown]
